FAERS Safety Report 8430611 (Version 3)
Quarter: 2013Q3

REPORT INFORMATION
  Report Type: Report from Study
  Country: FR (occurrence: FR)
  Receive Date: 20120228
  Receipt Date: 20130727
  Transmission Date: 20140515
  Serious: Yes (Hospitalization)
  Sender: FDA-Public Use
  Company Number: FR-ROCHE-1041479

PATIENT
  Age: 80 Year
  Sex: Male
  Weight: 64 kg

DRUGS (3)
  1. BEVACIZUMAB [Suspect]
     Indication: LUNG NEOPLASM MALIGNANT
     Route: 065
     Dates: start: 20110421
  2. BEVACIZUMAB [Suspect]
     Route: 065
     Dates: start: 20110512
  3. DOCETAXEL [Suspect]
     Indication: LUNG NEOPLASM MALIGNANT
     Route: 042
     Dates: start: 20120201, end: 20120208

REACTIONS (4)
  - Diarrhoea [Recovering/Resolving]
  - Pyrexia [Recovering/Resolving]
  - Performance status decreased [Recovering/Resolving]
  - Septic shock [Not Recovered/Not Resolved]
